FAERS Safety Report 10278554 (Version 2)
Quarter: 2014Q3

REPORT INFORMATION
  Report Type: Spontaneous
  Country: PH (occurrence: PH)
  Receive Date: 20140704
  Receipt Date: 20140709
  Transmission Date: 20150326
  Serious: Yes (Death, Hospitalization)
  Sender: FDA-Public Use
  Company Number: PHHY2014PH081876

PATIENT
  Age: 56 Year
  Sex: Female

DRUGS (1)
  1. AFINITOR [Suspect]
     Active Substance: EVEROLIMUS
     Indication: BREAST CANCER
     Dosage: 15 MG, DAILY
     Route: 048

REACTIONS (10)
  - Multi-organ failure [Fatal]
  - Dyspnoea [Fatal]
  - Platelet count decreased [Fatal]
  - Hypotension [Unknown]
  - Hepatic function abnormal [Fatal]
  - Haemoglobin decreased [Fatal]
  - Cough [Fatal]
  - Heart rate decreased [Unknown]
  - Pleural effusion [Fatal]
  - Blood creatinine increased [Unknown]
